FAERS Safety Report 7855567-8 (Version None)
Quarter: 2011Q4

REPORT INFORMATION
  Report Type: 
  Country: None (occurrence: None)
  Receive Date: 20111026
  Receipt Date: 20111020
  Transmission Date: 20120403
  Serious: Yes (Hospitalization)
  Sender: FDA-Public Use
  Company Number: GB-AMGEN-GBRCT2011054478

PATIENT
  Age: 30 Year
  Sex: Male

DRUGS (1)
  1. DENOSUMAB [Suspect]
     Indication: BONE GIANT CELL TUMOUR

REACTIONS (1)
  - PNEUMOTHORAX [None]
